FAERS Safety Report 25594778 (Version 1)
Quarter: 2025Q3

REPORT INFORMATION
  Report Type: Spontaneous
  Country: US (occurrence: US)
  Receive Date: 20250723
  Receipt Date: 20250723
  Transmission Date: 20251020
  Serious: Yes (Other)
  Sender: SANOFI AVENTIS
  Company Number: US-SA-2025SA209466

PATIENT
  Age: 60 Year
  Sex: Female

DRUGS (2)
  1. DUPILUMAB [Suspect]
     Active Substance: DUPILUMAB
     Indication: Asthma
     Dates: start: 2023
  2. DUPILUMAB [Suspect]
     Active Substance: DUPILUMAB
     Indication: Chronic obstructive pulmonary disease

REACTIONS (5)
  - Neuropathy peripheral [Unknown]
  - Hypoaesthesia [Unknown]
  - Hypertension [Unknown]
  - Irritable bowel syndrome [Unknown]
  - Diarrhoea [Unknown]
